FAERS Safety Report 14407543 (Version 1)
Quarter: 2018Q1

REPORT INFORMATION
  Report Type: Spontaneous
  Country: US (occurrence: US)
  Receive Date: 20180116
  Receipt Date: 20180116
  Transmission Date: 20180509
  Serious: Yes (Hospitalization)
  Sender: FDA-Public Use
  Company Number: None

PATIENT
  Age: 71 Year
  Sex: Male
  Weight: 125.4 kg

DRUGS (14)
  1. PRAVACHOL [Concomitant]
     Active Substance: PRAVASTATIN SODIUM
  2. VASOTEC [Concomitant]
     Active Substance: ENALAPRIL MALEATE
  3. OMEGA-3 FATTY ACIDS (LOVAZA) [Concomitant]
  4. LASIX [Suspect]
     Active Substance: FUROSEMIDE
  5. MAGNESIUM OXIDE. [Concomitant]
     Active Substance: MAGNESIUM OXIDE
  6. ALLOPURINOL (ZYLOPRIM) [Concomitant]
  7. ATENOLOL (TENORMIN) [Concomitant]
  8. PRILOSEC [Concomitant]
     Active Substance: OMEPRAZOLE MAGNESIUM
  9. FLOMAX [Concomitant]
     Active Substance: TAMSULOSIN HYDROCHLORIDE
  10. ASPIRIN. [Concomitant]
     Active Substance: ASPIRIN
  11. LASIX [Concomitant]
     Active Substance: FUROSEMIDE
  12. LATANOPROST (XALATAN) [Concomitant]
  13. TRAMADOL (ULTRAM) [Concomitant]
  14. METFORMIN [Suspect]
     Active Substance: METFORMIN HYDROCHLORIDE

REACTIONS (1)
  - Acute kidney injury [None]

NARRATIVE: CASE EVENT DATE: 20170602
